FAERS Safety Report 15375311 (Version 2)
Quarter: 2018Q3

REPORT INFORMATION
  Report Type: Spontaneous
  Country: US (occurrence: US)
  Receive Date: 20180912
  Receipt Date: 20180918
  Transmission Date: 20181010
  Serious: Yes (Other)
  Sender: FDA-Public Use
  Company Number: US-ASTRAZENECA-2018SF13228

PATIENT
  Sex: Female
  Weight: 82.6 kg

DRUGS (5)
  1. KLONOPIN [Concomitant]
     Active Substance: CLONAZEPAM
     Indication: DEPRESSION
     Route: 048
  2. BYDUREON [Suspect]
     Active Substance: EXENATIDE
     Indication: TYPE 2 DIABETES MELLITUS
     Route: 058
     Dates: start: 201807, end: 201808
  3. RANITIDINE. [Concomitant]
     Active Substance: RANITIDINE
     Indication: GASTROOESOPHAGEAL REFLUX DISEASE
     Route: 048
  4. ATORVASTATIN [Concomitant]
     Active Substance: ATORVASTATIN
     Indication: BLOOD CHOLESTEROL ABNORMAL
     Route: 048
  5. BENADRYL [Suspect]
     Active Substance: DIPHENHYDRAMINE HYDROCHLORIDE
     Dosage: 25.0MG EVERY 4 ? 6 HOURS
     Route: 065

REACTIONS (11)
  - Dysphonia [Unknown]
  - Burn oral cavity [Unknown]
  - Suicidal ideation [Recovered/Resolved]
  - Angioedema [Unknown]
  - Urticaria [Recovering/Resolving]
  - Dry mouth [Not Recovered/Not Resolved]
  - Injection site mass [Unknown]
  - Product use issue [Unknown]
  - Hypophagia [Unknown]
  - Lip swelling [Recovering/Resolving]
  - Oral disorder [Unknown]
